FAERS Safety Report 22200454 (Version 2)
Quarter: 2023Q2

REPORT INFORMATION
  Report Type: Spontaneous
  Country: CA (occurrence: CA)
  Receive Date: 20230412
  Receipt Date: 20230414
  Transmission Date: 20230722
  Serious: No
  Sender: FDA-Public Use
  Company Number: CA-CELLTRION INC.-2023CA000783

PATIENT

DRUGS (5)
  1. INFLECTRA [Suspect]
     Active Substance: INFLIXIMAB-DYYB
     Indication: Crohn^s disease
     Dosage: 500 MG EVERY 6 WEEKS
     Route: 042
     Dates: start: 20210129
  2. INFLECTRA [Suspect]
     Active Substance: INFLIXIMAB-DYYB
     Dosage: 500 MG EVERY 5 WEEK
     Route: 042
     Dates: start: 20221202
  3. INFLECTRA [Suspect]
     Active Substance: INFLIXIMAB-DYYB
     Dosage: 500 MG  EVERY 6 WEEKS
     Route: 042
     Dates: start: 20230106
  4. INFLECTRA [Suspect]
     Active Substance: INFLIXIMAB-DYYB
     Dosage: 500 MG  EVERY 6 WEEKS
     Route: 042
     Dates: start: 20230224
  5. INFLECTRA [Suspect]
     Active Substance: INFLIXIMAB-DYYB
     Dosage: 500 MG  EVERY 6 WEEKS
     Route: 042
     Dates: start: 20230404

REACTIONS (5)
  - Sinusitis [Unknown]
  - Condition aggravated [Unknown]
  - Off label use [Unknown]
  - Intentional product use issue [Unknown]
  - Off label use [Unknown]

NARRATIVE: CASE EVENT DATE: 20221202
